FAERS Safety Report 4466042-5 (Version None)
Quarter: 2004Q3

REPORT INFORMATION
  Report Type: 
  Country: None (occurrence: None)
  Receive Date: 20040930
  Receipt Date: 20040930
  Transmission Date: 20050211
  Serious: Yes (Other)
  Sender: FDA-Public Use
  Company Number: None

PATIENT
  Age: 47 Year
  Sex: Male

DRUGS (1)
  1. DEFINITY [Suspect]
     Indication: CARDIAC STRESS TEST
     Dates: start: 20040609, end: 20040609

REACTIONS (1)
  - SUPRAVENTRICULAR TACHYCARDIA [None]
